FAERS Safety Report 17997372 (Version 2)
Quarter: 2020Q3

REPORT INFORMATION
  Report Type: Spontaneous
  Country: BR (occurrence: BR)
  Receive Date: 20200708
  Receipt Date: 20200902
  Transmission Date: 20201103
  Serious: Yes (Life-Threatening)
  Sender: FDA-Public Use
  Company Number: BR-BIOGEN-2020BI00895355

PATIENT
  Sex: Male

DRUGS (6)
  1. AVONEX PEN [Suspect]
     Active Substance: INTERFERON BETA-1A
  2. AVONEX PEN [Suspect]
     Active Substance: INTERFERON BETA-1A
     Indication: TROPICAL SPASTIC PARESIS
     Route: 030
     Dates: start: 201711
  3. SOMALGIN CARDIO [Concomitant]
     Active Substance: ASPIRIN\DIHYDROXYALUMINUM AMINOACETATE ANHYDROUS\MAGNESIUM CARBONATE
     Indication: DEEP VEIN THROMBOSIS
     Route: 065
  4. XARELTO (RIVAROXABANA) [Concomitant]
     Indication: DEEP VEIN THROMBOSIS
     Route: 065
     Dates: start: 201809
  5. AVONEX PEN [Suspect]
     Active Substance: INTERFERON BETA-1A
  6. AVONEX PEN [Suspect]
     Active Substance: INTERFERON BETA-1A

REACTIONS (12)
  - Road traffic accident [Recovered/Resolved]
  - Burning sensation [Not Recovered/Not Resolved]
  - Adverse drug reaction [Unknown]
  - Peripheral swelling [Recovered/Resolved]
  - Mobility decreased [Unknown]
  - Contusion [Not Recovered/Not Resolved]
  - Oedema peripheral [Recovered/Resolved]
  - Injection site reaction [Not Recovered/Not Resolved]
  - Decreased immune responsiveness [Unknown]
  - Erythema [Unknown]
  - Drug ineffective [Unknown]
  - Pruritus [Not Recovered/Not Resolved]

NARRATIVE: CASE EVENT DATE: 2017
